FAERS Safety Report 4929772-4 (Version None)
Quarter: 2006Q1

REPORT INFORMATION
  Report Type: 
  Country: None (occurrence: None)
  Receive Date: 20060301
  Receipt Date: 20050901
  Transmission Date: 20060701
  Serious: Yes (Other)
  Sender: FDA-Public Use
  Company Number: US-MERCK-0509USA00404

PATIENT
  Age: 44 Year
  Sex: Male
  Weight: 100 kg

DRUGS (7)
  1. VIOXX [Suspect]
     Indication: ARTHRALGIA
     Route: 048
     Dates: start: 20011224, end: 20040315
  2. VIOXX [Suspect]
     Route: 048
     Dates: start: 20011224, end: 20040315
  3. ACETAMINOPHEN AND CODEINE [Concomitant]
     Route: 065
  4. VICODIN [Concomitant]
     Route: 065
     Dates: start: 20011224
  5. DOCUSATE SODIUM [Concomitant]
     Route: 065
  6. TRAMADOLOR [Concomitant]
     Route: 065
  7. HYDROCODONE BITARTRATE [Concomitant]
     Route: 065

REACTIONS (4)
  - HEART INJURY [None]
  - HYPERTENSION [None]
  - MYOCARDIAL INFARCTION [None]
  - PALPITATIONS [None]
